FAERS Safety Report 6564564-4 (Version None)
Quarter: 2010Q1

REPORT INFORMATION
  Report Type: 
  Country: None (occurrence: None)
  Receive Date: 20100201
  Receipt Date: 20100118
  Transmission Date: 20100710
  Serious: Yes (Other)
  Sender: FDA-Public Use
  Company Number: PHEH2008US03144

PATIENT
  Sex: Female

DRUGS (12)
  1. AREDIA [Suspect]
     Dosage: UNK
     Dates: start: 20011101, end: 20070401
  2. ZOMETA [Suspect]
  3. DECADRON                                /CAN/ [Concomitant]
     Dosage: UNK
     Dates: start: 20011101
  4. RADIATION TREATMENT [Concomitant]
  5. ALKERAN [Concomitant]
     Dosage: UNK
     Dates: start: 20011101
  6. PREDNISONE [Concomitant]
  7. BELLERGAL-S [Concomitant]
  8. ESTROGENIC SUBSTANCE [Concomitant]
  9. COZAAR [Concomitant]
     Dosage: UNK
  10. NAPROXEN [Concomitant]
     Dosage: 250 MG, BID
  11. ALBUTEROL [Concomitant]
  12. IPRATROPIUM [Concomitant]

REACTIONS (43)
  - ANXIETY [None]
  - BACK PAIN [None]
  - BONE LESION [None]
  - BRONCHITIS [None]
  - CARDIOMEGALY [None]
  - CHILLS [None]
  - COMPRESSION FRACTURE [None]
  - CONSTIPATION [None]
  - DEBRIDEMENT [None]
  - DIARRHOEA [None]
  - DYSPNOEA [None]
  - EMOTIONAL DISTRESS [None]
  - EMPHYSEMA [None]
  - EMPYEMA [None]
  - ENDODONTIC PROCEDURE [None]
  - EXOSTOSIS [None]
  - FISTULA REPAIR [None]
  - GRANULOMA [None]
  - INFECTION [None]
  - INFLAMMATION [None]
  - INFLUENZA [None]
  - INJURY [None]
  - LUMBAR SPINAL STENOSIS [None]
  - MYCOBACTERIUM AVIUM COMPLEX INFECTION [None]
  - NEUTROPENIA [None]
  - ORAL DISORDER [None]
  - OSTEOARTHRITIS [None]
  - OSTEONECROSIS [None]
  - OSTEOPENIA [None]
  - PAIN [None]
  - PHYSICAL DISABILITY [None]
  - PLEURAL EFFUSION [None]
  - PLEURISY [None]
  - PYREXIA [None]
  - RECTAL HAEMORRHAGE [None]
  - SCAR [None]
  - SPINAL FUSION SURGERY [None]
  - SPINAL OSTEOARTHRITIS [None]
  - SYNOVIAL CYST [None]
  - THORACOTOMY [None]
  - THYROIDECTOMY [None]
  - VERTEBROPLASTY [None]
  - VERTIGO [None]
